FAERS Safety Report 9366744 (Version 1)
Quarter: 2013Q2

REPORT INFORMATION
  Report Type: Spontaneous
  Country: AU (occurrence: AU)
  Receive Date: 20130625
  Receipt Date: 20130625
  Transmission Date: 20140414
  Serious: Yes (Death)
  Sender: FDA-Public Use
  Company Number: AU-MYLANLABS-2013S1013422

PATIENT
  Age: 54 Year
  Sex: Male

DRUGS (2)
  1. CARBOPLATIN [Suspect]
     Indication: CHEMOTHERAPY
     Dosage: AUC 5
     Route: 065
  2. ETOPOSIDE [Suspect]
     Indication: CHEMOTHERAPY
     Dosage: 100 MG/M2
     Route: 065

REACTIONS (1)
  - Disseminated intravascular coagulation [Fatal]
